FAERS Safety Report 23725364 (Version 1)
Quarter: 2024Q2

REPORT INFORMATION
  Report Type: Spontaneous
  Country: CN (occurrence: CN)
  Receive Date: 20240410
  Receipt Date: 20240410
  Transmission Date: 20240715
  Serious: Yes (Hospitalization)
  Sender: FDA-Public Use
  Company Number: CN-BEIGENE-BGN-2024-005046

PATIENT

DRUGS (3)
  1. TISLELIZUMAB [Suspect]
     Active Substance: TISLELIZUMAB
     Indication: Oesophageal carcinoma
     Dosage: 200 MILLIGRAM
     Route: 041
     Dates: start: 20240125
  2. CISPLATIN [Suspect]
     Active Substance: CISPLATIN
     Indication: Oesophageal carcinoma
     Dosage: 40MGD1-2,30MG D3
     Dates: start: 20240125
  3. PACLITAXEL [Concomitant]
     Active Substance: PACLITAXEL
     Dosage: 0.2 GRAM, DAY 1
     Dates: start: 20240125

REACTIONS (1)
  - Rash erythematous [Recovering/Resolving]
